FAERS Safety Report 10862611 (Version 1)
Quarter: 2015Q1

REPORT INFORMATION
  Report Type: Spontaneous
  Country: US (occurrence: None)
  Receive Date: 20150219
  Receipt Date: 20150219
  Transmission Date: 20150721
  Serious: Yes (Other)
  Sender: FDA-Public Use
  Company Number: US-2015VAL000149

PATIENT

DRUGS (8)
  1. ALBUTEROL /00139501/ (SALBUTAMOL) [Suspect]
     Active Substance: ALBUTEROL
     Indication: MATERNAL EXPOSURE DURING PREGNANCY
     Route: 064
  2. BUPIVACAINE [Suspect]
     Active Substance: BUPIVACAINE
     Indication: MATERNAL EXPOSURE DURING PREGNANCY
     Route: 064
  3. METOPROLOL TARTRATE (METOPROLOL TARTRATE) UNKNOWN [Suspect]
     Active Substance: METOPROLOL TARTRATE
     Indication: MATERNAL EXPOSURE DURING PREGNANCY
     Route: 064
  4. BICARBONATE [Suspect]
     Active Substance: BICARBONATE ION
     Indication: MATERNAL EXPOSURE DURING PREGNANCY
     Route: 064
  5. LIDOCAINE (LIDOCAINE) [Suspect]
     Active Substance: LIDOCAINE
     Indication: MATERNAL EXPOSURE DURING PREGNANCY
     Route: 064
  6. FENTANYL (FENTANYL) [Suspect]
     Active Substance: FENTANYL
     Indication: MATERNAL EXPOSURE DURING PREGNANCY
     Route: 064
  7. OXYTOCIN. [Suspect]
     Active Substance: OXYTOCIN
     Indication: MATERNAL EXPOSURE DURING PREGNANCY
     Route: 064
  8. EPINEPHRINE. [Suspect]
     Active Substance: EPINEPHRINE
     Indication: MATERNAL EXPOSURE DURING PREGNANCY
     Route: 064

REACTIONS (5)
  - Foetal heart rate abnormal [None]
  - Foetal exposure during pregnancy [None]
  - Apgar score low [None]
  - Premature baby [None]
  - Low birth weight baby [None]
